FAERS Safety Report 9575153 (Version 1)
Quarter: 2013Q4

REPORT INFORMATION
  Report Type: Spontaneous
  Country: NZ (occurrence: NZ)
  Receive Date: 20131001
  Receipt Date: 20131001
  Transmission Date: 20140711
  Serious: Yes (Disabling)
  Sender: FDA-Public Use
  Company Number: PHHY2013NZ107151

PATIENT
  Age: 82 Year
  Sex: Female

DRUGS (5)
  1. SIMVASTATIN [Suspect]
  2. HYDROCHLOROTHIAZIDE [Concomitant]
  3. LISINOPRIL [Concomitant]
  4. METOPROLOL [Concomitant]
  5. NIFEDIPINE [Concomitant]

REACTIONS (5)
  - Spinal column stenosis [Unknown]
  - Muscular weakness [Not Recovered/Not Resolved]
  - Back pain [Recovered/Resolved]
  - Abasia [Unknown]
  - Insomnia [Unknown]
